FAERS Safety Report 6132790-4 (Version None)
Quarter: 2009Q1

REPORT INFORMATION
  Report Type: 
  Country: None (occurrence: None)
  Receive Date: 20090326
  Receipt Date: 20090224
  Transmission Date: 20090719
  Serious: Yes (Other)
  Sender: FDA-Public Use
  Company Number: US-BAYER-200829565NA

PATIENT
  Age: 42 Year
  Sex: Male

DRUGS (11)
  1. MAGNEVIST [Suspect]
     Indication: NUCLEAR MAGNETIC RESONANCE IMAGING
     Dosage: TOTAL DAILY DOSE: 20 ML
     Dates: start: 20060123, end: 20060123
  2. MAGNEVIST [Suspect]
     Dosage: TOTAL DAILY DOSE: 40 ML
     Dates: start: 20060502, end: 20060502
  3. OMNISCAN [Suspect]
     Indication: NUCLEAR MAGNETIC RESONANCE IMAGING
  4. METHOTREXATE [Concomitant]
     Indication: RHEUMATOID ARTHRITIS
  5. PLAQUENIL [Concomitant]
     Indication: RHEUMATOID ARTHRITIS
     Dosage: ^400^
  6. VIOXX [Concomitant]
     Dosage: ^25^
  7. MINOXIDIL [Concomitant]
     Dosage: ^7.5^ AS OF SEP 2003
  8. PROCARDIA XL [Concomitant]
     Dosage: ^60^ AS OF SEP 2003
  9. TRANDATE [Concomitant]
     Dosage: TOTAL DAILY DOSE: 700 MG
  10. CALCIUM [Concomitant]
     Dosage: AS OF SEP 2003
  11. EPOGEN [Concomitant]
     Dosage: THREE TIMES PER WEEK, AS OF SEP 2003

REACTIONS (9)
  - ANHEDONIA [None]
  - ANXIETY [None]
  - EMOTIONAL DISTRESS [None]
  - JOINT RANGE OF MOTION DECREASED [None]
  - NEPHROGENIC SYSTEMIC FIBROSIS [None]
  - PAIN [None]
  - SKIN DISORDER [None]
  - SKIN INDURATION [None]
  - SKIN TIGHTNESS [None]
